FAERS Safety Report 9548801 (Version 2)
Quarter: 2014Q1

REPORT INFORMATION
  Report Type: Spontaneous
  Country: US (occurrence: None)
  Receive Date: 20130627
  Receipt Date: 20140328
  Transmission Date: 20141002
  Serious: No
  Sender: FDA-Public Use
  Company Number: 1000044476

PATIENT
  Sex: Male

DRUGS (2)
  1. LINZESS [Suspect]
     Indication: CONSTIPATION
     Dosage: 145 MCG (145 MCG, 1 IN 1 D, ORAL
     Route: 048
     Dates: start: 201304
  2. LIPITOR (ATORVASTATIN CALCIUM) [Concomitant]

REACTIONS (5)
  - Fatigue [None]
  - Diarrhoea [None]
  - Retching [None]
  - Drug ineffective [None]
  - Throat tightness [None]
